FAERS Safety Report 4269278-1 (Version None)
Quarter: 2004Q1

REPORT INFORMATION
  Report Type: 
  Country: None (occurrence: None)
  Receive Date: 20040109
  Receipt Date: 20031230
  Transmission Date: 20041129
  Serious: Yes (Hospitalization)
  Sender: FDA-Public Use
  Company Number: US-JNJFOC-20040100203

PATIENT
  Age: 50 Year
  Sex: Female

DRUGS (9)
  1. INFLIXIMAB (INFLIXIMAB,  RECOMBINANT) LYOPHILIZED POWDER [Suspect]
     Indication: RHEUMATOID ARTHRITIS
     Dosage: INTRAVENOUS
     Route: 042
     Dates: start: 20020110, end: 20030101
  2. PREDNISONE [Concomitant]
  3. PREVACID [Concomitant]
  4. LORTAB [Concomitant]
  5. FOLIC ACID [Concomitant]
  6. MOBIC [Concomitant]
  7. FOSAMAX [Concomitant]
  8. OSCAL + D (LEKOVIT CA) [Concomitant]
  9. MULTIVITAMIN [Concomitant]

REACTIONS (3)
  - DYSPNOEA [None]
  - LUNG INFILTRATION [None]
  - PULMONARY HYPERTENSION [None]
